FAERS Safety Report 14555173 (Version 1)
Quarter: 2018Q1

REPORT INFORMATION
  Report Type: Spontaneous
  Country: CA (occurrence: CA)
  Receive Date: 20180220
  Receipt Date: 20180220
  Transmission Date: 20180509
  Serious: Yes (Death, Hospitalization)
  Sender: FDA-Public Use
  Company Number: CA-ACTELION-A-NJ2018-167766

PATIENT
  Age: 77 Year
  Sex: Male
  Weight: 70.3 kg

DRUGS (12)
  1. CARIPUL [Suspect]
     Active Substance: EPOPROSTENOL
     Indication: PRODUCT USED FOR UNKNOWN INDICATION
     Dosage: UNK NG, UNK
     Route: 042
     Dates: start: 20160310
  2. VOLIBRIS [Concomitant]
     Active Substance: AMBRISENTAN
  3. VITAMIN D [Concomitant]
     Active Substance: CHOLECALCIFEROL
  4. CLOPIDOGREL [Concomitant]
     Active Substance: CLOPIDOGREL BISULFATE
  5. AMLODIPINE [Concomitant]
     Active Substance: AMLODIPINE BESYLATE
  6. OXYGEN. [Concomitant]
     Active Substance: OXYGEN
  7. ADCIRCA [Concomitant]
     Active Substance: TADALAFIL
  8. OMEPRAZOLE. [Concomitant]
     Active Substance: OMEPRAZOLE
  9. MORPHINE [Concomitant]
     Active Substance: MORPHINE
  10. ROSUVASTATIN. [Concomitant]
     Active Substance: ROSUVASTATIN
  11. COLCHICINE. [Concomitant]
     Active Substance: COLCHICINE
  12. TRAZODONE [Concomitant]
     Active Substance: TRAZODONE HYDROCHLORIDE

REACTIONS (5)
  - Pyrexia [Recovering/Resolving]
  - Delirium [Recovering/Resolving]
  - Cough [Recovering/Resolving]
  - Chronic obstructive pulmonary disease [Recovering/Resolving]
  - Death [Fatal]

NARRATIVE: CASE EVENT DATE: 20180214
